FAERS Safety Report 9818081 (Version 3)
Quarter: 2014Q1

REPORT INFORMATION
  Report Type: Spontaneous
  Country: GB (occurrence: GB)
  Receive Date: 20140115
  Receipt Date: 20140310
  Transmission Date: 20141002
  Serious: Yes (Hospitalization, Other)
  Sender: FDA-Public Use
  Company Number: PHFR2013GB006301

PATIENT
  Age: 75 Year
  Sex: Female
  Weight: 76.5 kg

DRUGS (9)
  1. CLOZARIL [Suspect]
     Indication: SCHIZOPHRENIA
     Dosage: UNK
     Route: 048
     Dates: start: 20030324
  2. CLOZARIL [Suspect]
     Dosage: 175 MG, DAILY
     Route: 048
  3. METFORMIN [Concomitant]
     Dosage: 500 MG, TID
     Route: 048
  4. SERTRALINE [Concomitant]
     Dosage: 50 MG, UNK
     Route: 048
  5. PARACETAMOL [Concomitant]
     Dosage: UNK
  6. SIMVASTATINE [Concomitant]
     Indication: TYPE 2 DIABETES MELLITUS
     Dosage: 10 MG, QD
  7. GLICLAZIDE [Concomitant]
     Indication: DEPRESSION
     Dosage: 160 MG, BID
  8. LANSOPRAZOLE [Concomitant]
     Indication: GASTROOESOPHAGEAL REFLUX DISEASE
     Dosage: 15 MG, QD
  9. TRIMETAPHAN [Concomitant]
     Indication: URINARY TRACT INFECTION
     Dosage: 100 MG, QD

REACTIONS (2)
  - Pneumonia [Recovered/Resolved]
  - Urinary tract infection [Not Recovered/Not Resolved]
